FAERS Safety Report 15526179 (Version 1)
Quarter: 2018Q4

REPORT INFORMATION
  Report Type: Spontaneous
  Country: BG (occurrence: BG)
  Receive Date: 20181018
  Receipt Date: 20181018
  Transmission Date: 20190205
  Serious: Yes (Other)
  Sender: FDA-Public Use
  Company Number: BG-BAYER-2018-191160

PATIENT

DRUGS (1)
  1. ACETYLSALICYLIC ACID({=100 MG) [Suspect]
     Active Substance: ASPIRIN
     Dosage: UNK

REACTIONS (8)
  - Kidney rupture [Recovering/Resolving]
  - Anaemia [Recovering/Resolving]
  - Back pain [Recovering/Resolving]
  - Hypotension [Recovering/Resolving]
  - Renal haemorrhage [Recovering/Resolving]
  - Clear cell renal cell carcinoma [Recovering/Resolving]
  - Swelling [Recovering/Resolving]
  - Haematuria [Recovering/Resolving]
